FAERS Safety Report 7497953-4 (Version None)
Quarter: 2011Q2

REPORT INFORMATION
  Report Type: 
  Country: None (occurrence: None)
  Receive Date: 20110524
  Receipt Date: 20110510
  Transmission Date: 20111010
  Serious: Yes (Hospitalization, Other)
  Sender: FDA-Public Use
  Company Number: US-BAYER-201041787NA

PATIENT
  Age: 56 Year
  Sex: Male
  Weight: 90.703 kg

DRUGS (62)
  1. COLCHICINE [Concomitant]
  2. FUROSEMIDE [Concomitant]
  3. PRAVASTATIN [Concomitant]
  4. IRON SULFATETHIAMIN COMPOUND TAB [Concomitant]
  5. DOPAMINE HCL [Concomitant]
     Dosage: 2 MCG/KG/MINUTE
     Route: 042
     Dates: start: 20050622
  6. MIDAZOLAM HCL [Concomitant]
     Dosage: 8.0 MG, UNK
     Route: 042
     Dates: start: 20050622
  7. FENTANYL [Concomitant]
     Dosage: 500.0 MCG
     Route: 042
     Dates: start: 20050622
  8. FENTANYL [Concomitant]
     Dosage: 250.0 MCG
     Dates: start: 20050622
  9. ALBUMIN (HUMAN) [Concomitant]
     Dosage: 12.5 G, UNK
     Route: 042
     Dates: start: 20050622
  10. CALCIUM CARBONATE [Concomitant]
     Dosage: 500 MG
     Route: 042
     Dates: start: 20050622
  11. PROPOFOL [Concomitant]
     Dosage: 45 MCG/KG/MINUTE
     Route: 042
     Dates: start: 20050622
  12. PROTAMINE SULFATE [Concomitant]
     Dosage: 50 MG, UNK
     Route: 042
     Dates: start: 20050622
  13. AMBIEN [Concomitant]
  14. DOXYCYCLINE [Concomitant]
  15. VASOPRESSIN [Concomitant]
     Dosage: 2 U, Q1HR
     Route: 042
     Dates: start: 20050622
  16. PANCURONIUM BROMIDE [Concomitant]
     Dosage: 2.0 MG, UNK
     Route: 042
     Dates: start: 20050622
  17. CLINDAMYCIN [Concomitant]
     Dosage: 600 MG, UNK
     Route: 042
     Dates: start: 20050622
  18. ZOSYN [Concomitant]
  19. LINEZOLID [Concomitant]
  20. VICODIN [Concomitant]
  21. ACETAMINOPHEN [Concomitant]
  22. ACETYLSALICYLIC ACID SRT [Concomitant]
  23. HYDRALAZINE HCL [Concomitant]
  24. MAGNESIUM [Concomitant]
  25. FLAGYL [Concomitant]
  26. POTASSIUM CHLORIDE [Concomitant]
  27. NORTRIPTYLINE HCL [Concomitant]
  28. PLATELETS [Concomitant]
     Dosage: 10 UNK, UNK
     Route: 042
     Dates: start: 20050622
  29. FRESH FROZEN PLASMA [Concomitant]
     Dosage: 4 U, UNK
     Route: 042
     Dates: start: 20050622
  30. INSULIN [Concomitant]
     Dosage: 4 U, Q1HR
     Route: 042
     Dates: start: 20050622
  31. HEPARIN [Concomitant]
     Dosage: 3500 U, UNK
     Route: 042
     Dates: start: 20050622
  32. TRASYLOL [Suspect]
     Indication: HEART TRANSPLANT
     Dosage: 50 ML, Q1HR
     Route: 042
     Dates: start: 20050622, end: 20050622
  33. ZANTAC [Concomitant]
  34. ALLOPURINOL [Concomitant]
  35. INSULIN [Concomitant]
     Dosage: 2 U, UNK
     Route: 058
     Dates: start: 20050622
  36. VASOPRESSIN [Concomitant]
     Dosage: 3 U Q1HR
     Route: 042
     Dates: start: 20050622
  37. MILRINONE [Concomitant]
     Dosage: 0.250 MCG/KG/MINUTE
     Route: 042
     Dates: start: 20050622
  38. PANCURONIUM BROMIDE [Concomitant]
     Dosage: 10.0 MG, UNK
     Route: 042
     Dates: start: 20050622
  39. PHENYLEPHRINE HCL [Concomitant]
     Dosage: 50 MCG
     Route: 042
     Dates: start: 20050622
  40. PYRIMETHAMINE TAB [Concomitant]
  41. TRASYLOL [Suspect]
     Dosage: 200 ML LOADING DOSE
     Route: 042
     Dates: start: 20050622
  42. COLACE [Concomitant]
  43. METHADONE HCL [Concomitant]
  44. CARVEDILOL [Concomitant]
  45. ISOPROTERENOL HCL [Concomitant]
     Dosage: 2.0 MCG/KG/MINUTE
     Route: 042
     Dates: start: 20050622
  46. NORMAL SALINE [Concomitant]
     Dosage: UNK
     Route: 042
     Dates: start: 20050622
  47. CALCIUM CARBONATE [Concomitant]
     Dosage: 500 MG, UNK
     Route: 042
     Dates: start: 20050622
  48. SOLU-MEDROL [Concomitant]
     Dosage: 500 MG, UNK
     Route: 042
     Dates: start: 20050622
  49. MUPIROCIN [Concomitant]
  50. OXYCODONE HCL [Concomitant]
  51. CEFUROXIME [Concomitant]
     Dosage: 1.50 MG, UNK
     Route: 042
     Dates: start: 20050622
  52. CALCIUM CARBONATE [Concomitant]
     Dosage: 1000 MG
     Route: 042
     Dates: start: 20050622
  53. PROTAMINE SULFATE [Concomitant]
     Dosage: 400 MG, UNK
     Route: 042
     Dates: start: 20050622
  54. BACLOFEN [Concomitant]
  55. NYSTATIN [Concomitant]
  56. AMLODIPINE [Concomitant]
  57. FOLATE SODIUM [Concomitant]
  58. SOTALOL HCL [Concomitant]
  59. LISINOPRIL [Concomitant]
  60. RED BLOOD CELLS [Concomitant]
     Dosage: 2 U, UNK
     Route: 042
     Dates: start: 20050622
  61. NOREPINEPHRINE BITARTRATE [Concomitant]
     Dosage: 0.05 MCG/KG/MINUTE
     Route: 042
     Dates: start: 20050622
  62. LEVOFLOXACIN [Concomitant]

REACTIONS (29)
  - FEAR [None]
  - SUICIDAL IDEATION [None]
  - PULMONARY HYPERTENSION [None]
  - CARDIAC FAILURE [None]
  - STRESS [None]
  - ATRIAL FIBRILLATION [None]
  - RENAL IMPAIRMENT [None]
  - INTENTIONAL OVERDOSE [None]
  - ANXIETY [None]
  - PULMONARY EMBOLISM [None]
  - RESPIRATORY DISTRESS [None]
  - LEUKOCYTOSIS [None]
  - GOUT [None]
  - RENAL FAILURE [None]
  - EMOTIONAL DISTRESS [None]
  - PAIN [None]
  - RENAL FAILURE ACUTE [None]
  - RENAL INJURY [None]
  - UNEVALUABLE EVENT [None]
  - INJURY [None]
  - DEPRESSION [None]
  - NEPHROLITHIASIS [None]
  - ELECTROENCEPHALOGRAM ABNORMAL [None]
  - RASH MACULO-PAPULAR [None]
  - URINARY TRACT INFECTION BACTERIAL [None]
  - BRONCHOPULMONARY ASPERGILLOSIS [None]
  - HAEMODYNAMIC INSTABILITY [None]
  - SEPSIS [None]
  - RENAL TUBULAR NECROSIS [None]
